FAERS Safety Report 5922543-1 (Version None)
Quarter: 2008Q4

REPORT INFORMATION
  Report Type: 
  Country: None (occurrence: None)
  Receive Date: 20081017
  Receipt Date: 20081009
  Transmission Date: 20090506
  Serious: Yes (Other)
  Sender: FDA-Public Use
  Company Number: PHHY2008DE19029

PATIENT
  Age: 42 Year
  Sex: Female

DRUGS (7)
  1. RASILEZ [Suspect]
     Dosage: 150 MG, QD
     Dates: start: 20080820
  2. LANTUS [Concomitant]
     Indication: DIABETES MELLITUS
     Dosage: 16 IU, DAILY
     Dates: end: 20080801
  3. LANTUS [Concomitant]
     Dosage: 8 IU, DAILY
     Dates: start: 20080801, end: 20080822
  4. LANTUS [Concomitant]
     Dosage: 10 IU, DAILY
     Dates: start: 20080823
  5. APIDRA [Concomitant]
     Indication: DIABETES MELLITUS
     Dosage: 5 IU/DAY
     Dates: end: 20080801
  6. APIDRA [Concomitant]
     Dosage: 2 IU/DAY
     Dates: start: 20080801, end: 20080822
  7. APIDRA [Concomitant]
     Dosage: 4 IU/DAY
     Dates: start: 20080823

REACTIONS (3)
  - BLOOD PRESSURE INCREASED [None]
  - HYPOGLYCAEMIA [None]
  - MALAISE [None]
